FAERS Safety Report 6408608-9 (Version None)
Quarter: 2009Q4

REPORT INFORMATION
  Report Type: 
  Country: None (occurrence: None)
  Receive Date: 20091019
  Receipt Date: 20091008
  Transmission Date: 20100525
  Serious: Yes (Hospitalization)
  Sender: FDA-Public Use
  Company Number: URSO-2009-104

PATIENT
  Age: 52 Year
  Sex: Female

DRUGS (4)
  1. URSODIOL [Suspect]
     Indication: CHOLESTASIS
     Dosage: 300MG ORAL
     Route: 048
     Dates: start: 20090710, end: 20090731
  2. LOXONIN (LOXOPROFEN SODIUM) [Concomitant]
  3. CLARITHROMYCIN [Concomitant]
  4. SIGMART (NICORANDIL) [Concomitant]

REACTIONS (6)
  - HYPERPHOSPHATASAEMIA [None]
  - LYMPHOMA [None]
  - RENAL DISORDER [None]
  - RENAL FAILURE ACUTE [None]
  - TUBULOINTERSTITIAL NEPHRITIS [None]
  - VASCULITIS [None]
